FAERS Safety Report 18013504 (Version 1)
Quarter: 2020Q3

REPORT INFORMATION
  Report Type: Spontaneous
  Country: US (occurrence: US)
  Receive Date: 20200711
  Receipt Date: 20200711
  Transmission Date: 20201103
  Serious: Yes (Death, Hospitalization)
  Sender: FDA-Public Use
  Company Number: None

PATIENT
  Age: 61 Year
  Sex: Male
  Weight: 55.5 kg

DRUGS (2)
  1. 5?FLUOROURACIL (5?FU) [Suspect]
     Active Substance: FLUOROURACIL
     Dates: end: 20180111
  2. CISPLATIN. [Suspect]
     Active Substance: CISPLATIN
     Dates: end: 20180111

REACTIONS (8)
  - Unresponsive to stimuli [None]
  - Mouth haemorrhage [None]
  - Heart rate increased [None]
  - Pulse absent [None]
  - Dyspnoea [None]
  - Haemoglobin decreased [None]
  - Blood pressure systolic increased [None]
  - Haemoptysis [None]

NARRATIVE: CASE EVENT DATE: 20180121
